FAERS Safety Report 9513371 (Version 1)
Quarter: 2013Q1

REPORT INFORMATION
  Report Type: Spontaneous
  Country: US (occurrence: None)
  Receive Date: 20130305
  Receipt Date: 20130305
  Transmission Date: 20140127
  Serious: Yes (Hospitalization, Disabling)
  Sender: FDA-Public Use
  Company Number: 163-21880-12101944

PATIENT
  Age: 80 Year
  Sex: Male

DRUGS (10)
  1. REVLIMID [Suspect]
     Indication: PLASMA CELL MYELOMA
     Route: 048
     Dates: start: 20120913
  2. SENOKOT-S (COLOXYL WITH SENNA) (TABLETS) [Concomitant]
  3. ANTIBIOTICS (ANTIBIOTICS) [Concomitant]
  4. HYDROMORPHONE (HYDROMORPHONE) (TABLETS) [Concomitant]
  5. MORPHINE [Concomitant]
  6. DEXAMETHASONE (DEXAMETHASONE) [Concomitant]
  7. FUROSEMIDE (FUROSEMIDE) [Concomitant]
  8. AMLODIPINE (AMLODIPINE) [Concomitant]
  9. TRAZODONE (TRAZODONE) (TABLETS) [Concomitant]
  10. TOLBUTAMIDE (TOLBUTAMIDE) (TABLETS) [Concomitant]

REACTIONS (1)
  - Cancer pain [None]
